FAERS Safety Report 24294179 (Version 1)
Quarter: 2024Q3

REPORT INFORMATION
  Report Type: Spontaneous
  Country: US (occurrence: US)
  Receive Date: 20240906
  Receipt Date: 20240906
  Transmission Date: 20241017
  Serious: No
  Sender: DOMPE FARMACEUTICI
  Company Number: US-FARMAPROD-202308-202405-1922

PATIENT
  Sex: Female

DRUGS (18)
  1. OXERVATE [Suspect]
     Active Substance: CENEGERMIN-BKBJ
     Indication: Neurotrophic keratopathy
     Route: 047
     Dates: start: 20240513
  2. OXERVATE [Suspect]
     Active Substance: CENEGERMIN-BKBJ
  3. DOXYCYCLINE HYCLATE [Concomitant]
     Active Substance: DOXYCYCLINE HYCLATE
  4. ROBITUSSIN COUGH-CHEST-CONG DM [Concomitant]
  5. ASPIRIN [Concomitant]
     Active Substance: ASPIRIN
  6. LEVEMIR [Concomitant]
     Active Substance: INSULIN DETEMIR
     Dosage: VIAL
  7. ALEVE [Concomitant]
     Active Substance: NAPROXEN SODIUM
  8. VITAMINS [Concomitant]
     Active Substance: VITAMINS
  9. AFREZZA [Concomitant]
     Active Substance: INSULIN HUMAN
     Dosage: 12 UNIT CARTRIDGE WITH INHALER
  10. HUMALOG [Concomitant]
     Active Substance: INSULIN LISPRO
     Dosage: VIAL
  11. GABAPENTIN [Concomitant]
     Active Substance: GABAPENTIN
  12. TORSEMIDE [Concomitant]
     Active Substance: TORSEMIDE
  13. JARDIANCE [Concomitant]
     Active Substance: EMPAGLIFLOZIN
  14. PANTOPRAZOLE SODIUM [Concomitant]
     Active Substance: PANTOPRAZOLE SODIUM
  15. METOPROLOL SUCCINATE [Concomitant]
     Active Substance: METOPROLOL SUCCINATE
  16. ATORVASTATIN CALCIUM [Concomitant]
     Active Substance: ATORVASTATIN CALCIUM
  17. ELIQUIS [Concomitant]
     Active Substance: APIXABAN
  18. REFRESH CLASSIC [Concomitant]
     Active Substance: POLYVINYL ALCOHOL\POVIDONE

REACTIONS (5)
  - Eye pain [Not Recovered/Not Resolved]
  - Drug ineffective [Unknown]
  - Ocular discomfort [Unknown]
  - Therapy interrupted [Unknown]
  - Nasopharyngitis [Unknown]
